FAERS Safety Report 13448308 (Version 1)
Quarter: 2017Q2

REPORT INFORMATION
  Report Type: Spontaneous
  Country: US (occurrence: US)
  Receive Date: 20170417
  Receipt Date: 20170417
  Transmission Date: 20170830
  Serious: No
  Sender: FDA-Public Use
  Company Number: US-ASTRAZENECA-2017SE36371

PATIENT
  Sex: Female

DRUGS (2)
  1. BRAVANNA [Concomitant]
     Dosage: TWO TIMES ADAY
  2. SYMBICORT [Suspect]
     Active Substance: BUDESONIDE\FORMOTEROL FUMARATE DIHYDRATE
     Route: 055

REACTIONS (5)
  - Nausea [Unknown]
  - Viral upper respiratory tract infection [Unknown]
  - Decreased appetite [Unknown]
  - Cough [Unknown]
  - Feeling abnormal [Unknown]
